FAERS Safety Report 7488049-6 (Version None)
Quarter: 2011Q2

REPORT INFORMATION
  Report Type: 
  Country: None (occurrence: None)
  Receive Date: 20110518
  Receipt Date: 20110516
  Transmission Date: 20111010
  Serious: Yes (Other)
  Sender: FDA-Public Use
  Company Number: US-PFIZER INC-2011041768

PATIENT
  Age: 35 Year
  Sex: Male

DRUGS (8)
  1. ACETYLSALICYLIC ACID [Concomitant]
     Indication: CARDIAC DISORDER
  2. CHANTIX [Suspect]
     Indication: SMOKING CESSATION THERAPY
     Dosage: STARTER PACK
     Dates: start: 20090606, end: 20090706
  3. LASIX [Concomitant]
     Indication: HYPERTENSION
     Dosage: UNK
     Dates: start: 20070101
  4. ACETYLSALICYLIC ACID [Concomitant]
     Indication: PAIN
     Dosage: UNK
  5. VICODIN [Concomitant]
     Indication: PAIN
     Dosage: UNK
     Dates: start: 20050101
  6. LASIX [Concomitant]
     Indication: DIURETIC THERAPY
  7. NAPROXEN [Concomitant]
     Indication: PAIN
     Dosage: UNK
     Dates: start: 20080101
  8. FLEXERIL [Concomitant]
     Indication: MUSCLE SPASMS
     Dosage: UNK
     Dates: start: 20050101

REACTIONS (13)
  - SUICIDE ATTEMPT [None]
  - HALLUCINATION, VISUAL [None]
  - DISTURBANCE IN ATTENTION [None]
  - NIGHTMARE [None]
  - IRRITABILITY [None]
  - ANXIETY [None]
  - AGGRESSION [None]
  - MOOD SWINGS [None]
  - ANGER [None]
  - INSOMNIA [None]
  - AMNESIA [None]
  - LOSS OF CONSCIOUSNESS [None]
  - DEPRESSION [None]
